FAERS Safety Report 21033126 (Version 3)
Quarter: 2022Q3

REPORT INFORMATION
  Report Type: Report from Study
  Country: US (occurrence: US)
  Receive Date: 20220701
  Receipt Date: 20220725
  Transmission Date: 20221027
  Serious: Yes (Hospitalization)
  Sender: FDA-Public Use
  Company Number: US-JNJFOC-20220657032

PATIENT
  Age: 43 Year
  Sex: Female

DRUGS (11)
  1. SPRAVATO [Suspect]
     Active Substance: ESKETAMINE
     Indication: Depression
     Dosage: 56 MG, ONE DOSE
     Dates: start: 20220610, end: 20220610
  2. SPRAVATO [Suspect]
     Active Substance: ESKETAMINE
     Indication: Major depression
     Dosage: 84 MG, 1 DOSE
     Dates: start: 20220613, end: 20220613
  3. SPRAVATO [Suspect]
     Active Substance: ESKETAMINE
     Dosage: RECENT DOSE
     Dates: start: 20220623, end: 20220623
  4. BUPROPION [Concomitant]
     Active Substance: BUPROPION
     Indication: Major depression
  5. CLONIDINE [Concomitant]
     Active Substance: CLONIDINE
     Indication: Major depression
     Dosage: 0.3
  6. DULOXETINE [Concomitant]
     Active Substance: DULOXETINE
     Indication: Major depression
  7. LORAZEPAM [Concomitant]
     Active Substance: LORAZEPAM
     Indication: Major depression
  8. QUETIAPINE [Concomitant]
     Active Substance: QUETIAPINE
     Indication: Major depression
     Dosage: EVERY EVENING
  9. TOPIRAMATE [Concomitant]
     Active Substance: TOPIRAMATE
     Indication: Major depression
  10. VORTIOXETINE [Concomitant]
     Active Substance: VORTIOXETINE
     Indication: Major depression
  11. VYVANSE [Concomitant]
     Active Substance: LISDEXAMFETAMINE DIMESYLATE
     Indication: Major depression

REACTIONS (3)
  - Sepsis [Recovered/Resolved]
  - Cellulitis [Recovered/Resolved]
  - Dissociation [Recovered/Resolved]

NARRATIVE: CASE EVENT DATE: 20220615
